FAERS Safety Report 7985867-2 (Version None)
Quarter: 2011Q4

REPORT INFORMATION
  Report Type: 
  Country: None (occurrence: None)
  Receive Date: 20111216
  Receipt Date: 20111205
  Transmission Date: 20120403
  Serious: Yes (Other)
  Sender: FDA-Public Use
  Company Number: US-BAYER-201027399NA

PATIENT
  Age: 33 Year
  Sex: Female

DRUGS (9)
  1. YASMIN [Suspect]
     Indication: CONTRACEPTION
     Dosage: UNK UNK, UNK
     Route: 048
     Dates: start: 20061001, end: 20080701
  2. MULTI-VITAMIN [Concomitant]
     Dosage: UNK
     Route: 048
     Dates: start: 20080701, end: 20080720
  3. IBUPROFEN [Concomitant]
     Dosage: UNK
     Route: 048
     Dates: start: 20000101
  4. IBUPROFEN (ADVIL) [Concomitant]
     Indication: PAIN
     Route: 048
  5. MULTI-VITAMIN [Concomitant]
     Dosage: UNK
     Route: 048
     Dates: start: 20070101, end: 20090101
  6. ZITHROMAX [Concomitant]
     Dosage: UNK UNK, QD
     Route: 048
     Dates: start: 20080701
  7. FLAGYL [Concomitant]
     Dosage: 500 MG, BID
     Route: 048
     Dates: start: 20080505
  8. VITAMIN C [Concomitant]
     Dosage: UNK
     Route: 048
     Dates: start: 20050101
  9. NITROFURANTOIN [Concomitant]
     Dosage: UNK
     Route: 048
     Dates: start: 20080401

REACTIONS (9)
  - FEAR [None]
  - THROMBOPHLEBITIS SUPERFICIAL [None]
  - VENOUS INSUFFICIENCY [None]
  - OEDEMA PERIPHERAL [None]
  - ANXIETY [None]
  - PAIN [None]
  - PAIN IN EXTREMITY [None]
  - DISCOMFORT [None]
  - VENOUS INJURY [None]
